FAERS Safety Report 11317009 (Version 1)
Quarter: 2015Q3

REPORT INFORMATION
  Report Type: Spontaneous
  Country: US (occurrence: None)
  Receive Date: 20150727
  Receipt Date: 20150727
  Transmission Date: 20151125
  Serious: Yes (Other)
  Sender: FDA-Public Use
  Company Number: None

PATIENT
  Age: 51 Year
  Sex: Female
  Weight: 58.97 kg

DRUGS (10)
  1. KLOR-CON [Concomitant]
     Active Substance: POTASSIUM CHLORIDE
  2. ORUVAIL [Concomitant]
     Active Substance: KETOPROFEN
  3. BABY ASPIRIN [Concomitant]
     Active Substance: ASPIRIN
  4. HCTZ [Concomitant]
     Active Substance: HYDROCHLOROTHIAZIDE
  5. BUPROPION. [Concomitant]
     Active Substance: BUPROPION
  6. PROLOSEC [Concomitant]
  7. CENTRUM SILVER [Concomitant]
     Active Substance: VITAMINS
  8. FISH OIL [Concomitant]
     Active Substance: FISH OIL
  9. BUPROPION SR 150 MG SUN PHARMACEUTICAL [Suspect]
     Active Substance: BUPROPION
     Indication: DEPRESSION
     Dosage: BUPROPION THREE TIMES DAILY TAKEN BY MOUTH
     Route: 048
  10. ATENOLOL. [Concomitant]
     Active Substance: ATENOLOL

REACTIONS (5)
  - Depression [None]
  - Anxiety [None]
  - Crying [None]
  - Product substitution issue [None]
  - Product formulation issue [None]
